FAERS Safety Report 16831124 (Version 1)
Quarter: 2019Q3

REPORT INFORMATION
  Report Type: Spontaneous
  Country: NL (occurrence: NL)
  Receive Date: 20190920
  Receipt Date: 20190920
  Transmission Date: 20191005
  Serious: Yes (Other)
  Sender: FDA-Public Use
  Company Number: NL-TEVA-2019-NL-1109987

PATIENT
  Age: 67 Year
  Sex: Female
  Weight: 99 kg

DRUGS (6)
  1. ELIQUIS [Concomitant]
     Active Substance: APIXABAN
     Dosage: 2 X 1 TABLET PER DAY, 5 MG
  2. SYMBICORT [Concomitant]
     Active Substance: BUDESONIDE\FORMOTEROL FUMARATE DIHYDRATE
     Dosage: 2 X PER DAY, IF NECESSARY.
  3. OMEPRAZOL AURO 40 MG [Concomitant]
     Active Substance: OMEPRAZOLE
     Dosage: 2 X 1 TABLET PER DAY, 40 MG
  4. GLICLAZIDE SANDOZ 30 MG [Concomitant]
     Dosage: 1 X 2 TABLETS PER DAY, 60 MG
  5. METFORMINE TABLET, 500 MG (MILLIGRAM) [Suspect]
     Active Substance: METFORMIN HYDROCHLORIDE
     Indication: BLOOD GLUCOSE INCREASED
     Dosage: 2 X 2 TABLETS PER DAY, 1000 MG
     Dates: start: 2019, end: 20190627
  6. ROSUVASTATINE CF 5 MG [Concomitant]
     Dosage: 5 MILLIGRAM DAILY; 1 X 1 TABLET PER DAY

REACTIONS (3)
  - Condition aggravated [Recovered/Resolved]
  - Arrhythmia [Recovered/Resolved]
  - Pruritus generalised [Recovered/Resolved]

NARRATIVE: CASE EVENT DATE: 2019
